FAERS Safety Report 9875750 (Version 1)
Quarter: 2014Q1

REPORT INFORMATION
  Report Type: Spontaneous
  Country: US (occurrence: None)
  Receive Date: 20140205
  Receipt Date: 20140205
  Transmission Date: 20141002
  Serious: Yes (Hospitalization)
  Sender: FDA-Public Use
  Company Number: None

PATIENT
  Age: 59 Year
  Sex: Male
  Weight: 51.17 kg

DRUGS (7)
  1. CETUXIMAB [Suspect]
     Indication: SQUAMOUS CELL CARCINOMA OF HEAD AND NECK
     Route: 042
     Dates: start: 20130930, end: 20131118
  2. PAZOPANIB [Suspect]
     Indication: SQUAMOUS CELL CARCINOMA OF HEAD AND NECK
     Route: 048
     Dates: start: 20130930, end: 20131125
  3. LOSARTAN POTASSIUM [Concomitant]
  4. MORPHINE SULFATE ER [Concomitant]
  5. OXYCODONE HCI [Concomitant]
  6. SMZ-TMP DS [Concomitant]
  7. SODIUM CHLORIDE [Concomitant]

REACTIONS (4)
  - Pneumonia necrotising [None]
  - Lung infection [None]
  - Squamous cell carcinoma of head and neck [None]
  - Malignant neoplasm progression [None]
